FAERS Safety Report 24630857 (Version 1)
Quarter: 2024Q4

REPORT INFORMATION
  Report Type: Spontaneous
  Country: US (occurrence: US)
  Receive Date: 20241118
  Receipt Date: 20241118
  Transmission Date: 20250115
  Serious: Yes (Other)
  Sender: ORGANON
  Company Number: US-ORGANON-O2411USA000878

PATIENT
  Age: 79 Year
  Sex: Female

DRUGS (14)
  1. SINEMET [Suspect]
     Active Substance: CARBIDOPA\LEVODOPA
     Dosage: UNK
     Route: 048
  2. NUPLAZID [Suspect]
     Active Substance: PIMAVANSERIN TARTRATE
     Indication: Parkinson^s disease
     Dosage: 34 MILLIGRAM, QD
     Route: 048
     Dates: start: 20220110
  3. VITAMIN D3 [Concomitant]
     Active Substance: CHOLECALCIFEROL
     Dosage: UNK
  4. BUSPIRONE [Concomitant]
     Active Substance: BUSPIRONE HYDROCHLORIDE
     Dosage: UNK
  5. LOSARTAN [Concomitant]
     Active Substance: LOSARTAN
     Dosage: UNK
  6. PANTOPRAZOLE [Concomitant]
     Active Substance: PANTOPRAZOLE
     Dosage: UNK
  7. ARICEPT [Concomitant]
     Active Substance: DONEPEZIL HYDROCHLORIDE
     Dosage: UNK
  8. MIDODRINE HYDROCHLORIDE [Concomitant]
     Active Substance: MIDODRINE HYDROCHLORIDE
     Dosage: UNK
  9. CITALOPRAM HYDROCHLORIDE [Concomitant]
     Active Substance: CITALOPRAM HYDROCHLORIDE
     Dosage: UNK
  10. MELATONIN [MELATONIN;PYRIDOXINE HYDROCHLORIDE] [Concomitant]
     Dosage: UNK
  11. MEMANTINE [Concomitant]
     Active Substance: MEMANTINE
     Dosage: UNK
  12. SEROQUEL [Concomitant]
     Active Substance: QUETIAPINE FUMARATE
     Dosage: UNK
  13. VITAMIN B12 [Concomitant]
     Active Substance: CYANOCOBALAMIN
     Dosage: UNK
  14. CARBIDOPA\LEVODOPA [Concomitant]
     Active Substance: CARBIDOPA\LEVODOPA
     Dosage: UNK

REACTIONS (6)
  - Parkinson^s disease [Recovered/Resolved]
  - Hallucination [Recovered/Resolved]
  - Hypersomnia [Recovered/Resolved]
  - Urinary tract infection [Recovered/Resolved]
  - Condition aggravated [Recovered/Resolved]
  - Dyspnoea [Recovered/Resolved]

NARRATIVE: CASE EVENT DATE: 20240923
